FAERS Safety Report 26163753 (Version 1)
Quarter: 2025Q4

REPORT INFORMATION
  Report Type: Spontaneous
  Country: US (occurrence: None)
  Receive Date: 20251216
  Receipt Date: 20251216
  Transmission Date: 20260117
  Serious: No
  Sender: UCB
  Company Number: US-UCBSA-2025071912

PATIENT
  Age: 47 Year
  Weight: 82.585 kg

DRUGS (1)
  1. BIMZELX [Suspect]
     Active Substance: BIMEKIZUMAB-BKZX
     Indication: Psoriasis
     Dosage: 320 MILLIGRAM, EV 4 WEEKS

REACTIONS (10)
  - Fatigue [Unknown]
  - Malaise [Unknown]
  - Illness [Unknown]
  - Chills [Unknown]
  - Dyspnoea [Unknown]
  - Arthralgia [Unknown]
  - Paraesthesia [Unknown]
  - Headache [Unknown]
  - Respiratory tract congestion [Unknown]
  - Psoriasis [Unknown]
